FAERS Safety Report 6982076-0 (Version None)
Quarter: 2010Q3

REPORT INFORMATION
  Report Type: 
  Country: None (occurrence: None)
  Receive Date: 20100909
  Receipt Date: 20100824
  Transmission Date: 20110219
  Serious: Yes (Other)
  Sender: FDA-Public Use
  Company Number: FKO201000356

PATIENT
  Age: 73 Year
  Sex: Male

DRUGS (2)
  1. EPIRUBICIN [Suspect]
     Indication: BLADDER CANCER
     Dosage: INTRAVESICAL
     Route: 043
  2. CEPHALOSPORIN (CEPHALOSPORINS AND RELATED SUBSTANCES) (CEPHALOSPORINS [Concomitant]

REACTIONS (16)
  - ABDOMINAL DISTENSION [None]
  - BLADDER DISORDER [None]
  - BLADDER FIBROSIS [None]
  - BLADDER NECROSIS [None]
  - BLADDER PERFORATION [None]
  - CELLULITIS [None]
  - CHILLS [None]
  - CYSTITIS NONINFECTIVE [None]
  - DYSURIA [None]
  - EXTRAVASATION [None]
  - MICTURITION URGENCY [None]
  - NO THERAPEUTIC RESPONSE [None]
  - ORAL DISORDER [None]
  - PYREXIA [None]
  - SOFT TISSUE NECROSIS [None]
  - URINARY BLADDER HAEMORRHAGE [None]
